FAERS Safety Report 20102612 (Version 1)
Quarter: 2021Q4

REPORT INFORMATION
  Report Type: Spontaneous
  Country: US (occurrence: US)
  Receive Date: 20211123
  Receipt Date: 20211123
  Transmission Date: 20220303
  Serious: No
  Sender: FDA-Public Use
  Company Number: US-ORGANON-O2111USA002256

PATIENT
  Age: 18 Year
  Sex: Female
  Weight: 55.329 kg

DRUGS (1)
  1. NEXPLANON [Suspect]
     Active Substance: ETONOGESTREL
     Indication: Contraception
     Dosage: 1 IMPLANT, IN LEFT ARM, EVERY 3 YEARS
     Route: 059
     Dates: start: 20200128

REACTIONS (2)
  - Menstruation delayed [Unknown]
  - Weight increased [Unknown]

NARRATIVE: CASE EVENT DATE: 20211102
